FAERS Safety Report 9337768 (Version 1)
Quarter: 2013Q2

REPORT INFORMATION
  Report Type: Spontaneous
  Country: NL (occurrence: NL)
  Receive Date: 20130607
  Receipt Date: 20130607
  Transmission Date: 20140414
  Serious: Yes (Other)
  Sender: FDA-Public Use
  Company Number: NL-PFIZER INC-2013167894

PATIENT
  Age: 65 Year
  Sex: Female
  Weight: 95 kg

DRUGS (3)
  1. XALATAN [Suspect]
     Indication: GLAUCOMA
     Dosage: 1 DF, UNK
     Dates: start: 20130418, end: 20130517
  2. BRINZOLAMIDE/TIMOLOL [Concomitant]
     Dosage: UNK
     Dates: start: 20130122
  3. VALSARTAN [Concomitant]
     Dosage: 160 MG, 1X/DAY
     Dates: start: 2010

REACTIONS (1)
  - Herpes ophthalmic [Recovering/Resolving]
